FAERS Safety Report 8236559-6 (Version None)
Quarter: 2012Q1

REPORT INFORMATION
  Report Type: 
  Country: None (occurrence: None)
  Receive Date: 20120327
  Receipt Date: 20120320
  Transmission Date: 20120608
  Serious: Yes (Hospitalization, Other)
  Sender: FDA-Public Use
  Company Number: FR-GENZYME-200916918GPV

PATIENT
  Sex: Male
  Weight: 77 kg

DRUGS (12)
  1. CYCLOPHOSPHAMIDE [Suspect]
     Indication: CHRONIC LYMPHOCYTIC LEUKAEMIA
     Dosage: 250 MG/M2, QDX3 (6 CYCLES)
     Route: 048
     Dates: start: 20080514, end: 20081016
  2. XALATAN [Concomitant]
     Indication: GLAUCOMA
     Dosage: UNK, UNK
     Route: 031
  3. PANTOPRAZOLE SODIUM [Concomitant]
     Indication: PRODUCT USED FOR UNKNOWN INDICATION
     Dosage: UNK
     Route: 065
  4. BACTRIM [Concomitant]
     Indication: ANTIFUNGAL PROPHYLAXIS
     Dosage: 1 DF TIW
     Route: 048
     Dates: start: 20080513
  5. CAMPATH [Suspect]
     Indication: CHRONIC LYMPHOCYTIC LEUKAEMIA
     Dosage: 30 MG/M2, QDX3 (6 CYCLES)
     Route: 058
     Dates: start: 20080514, end: 20081016
  6. VALACYCLOVIR HYDROCHLORIDE [Concomitant]
     Indication: ANTIVIRAL PROPHYLAXIS
     Dosage: 500 MG BID
     Route: 048
     Dates: start: 20080505
  7. FLUDARA [Suspect]
     Indication: CHRONIC LYMPHOCYTIC LEUKAEMIA
     Dosage: 40 MG/M2, QDX3 (6 XCYCLES)
     Route: 048
     Dates: start: 20080514, end: 20081016
  8. CLARITHROMYCIN [Concomitant]
     Indication: PRODUCT USED FOR UNKNOWN INDICATION
     Dosage: UNK
     Route: 065
  9. FOLIC ACID [Concomitant]
     Indication: VITAMIN SUPPLEMENTATION
     Dosage: 5 MG TIW
     Route: 048
     Dates: start: 20080513
  10. VFEND [Concomitant]
     Indication: ANTIFUNGAL PROPHYLAXIS
     Dosage: 200 MG 2X/W
     Route: 048
     Dates: start: 20080711
  11. AUGMENTIN '125' [Concomitant]
     Indication: PRODUCT USED FOR UNKNOWN INDICATION
     Dosage: UNK
     Route: 065
  12. CIPROFLOXACIN [Concomitant]
     Indication: PRODUCT USED FOR UNKNOWN INDICATION
     Dosage: UNK
     Route: 065

REACTIONS (4)
  - GASTROENTERITIS VIRAL [None]
  - VASCULITIC RASH [None]
  - ACUTE FEBRILE NEUTROPHILIC DERMATOSIS [None]
  - CHOLELITHIASIS OBSTRUCTIVE [None]
